FAERS Safety Report 5385122-3 (Version None)
Quarter: 2007Q3

REPORT INFORMATION
  Report Type: 
  Country: None (occurrence: None)
  Receive Date: 20070706
  Receipt Date: 20070706
  Transmission Date: 20080115
  Serious: Yes (Hospitalization)
  Sender: FDA-Public Use
  Company Number: None

PATIENT
  Sex: Male
  Weight: 93.8946 kg

DRUGS (11)
  1. BEXXAR [Suspect]
     Indication: B-CELL LYMPHOMA
     Dosage: 450 MG IV + 66.7 MG IV 50 CGY TOTAL RADIATION
     Route: 042
     Dates: start: 20070403
  2. BEXXAR [Suspect]
     Indication: B-CELL LYMPHOMA
     Dosage: 450 MG IV + 66.7 MG IV 50 CGY TOTAL RADIATION
     Route: 042
     Dates: start: 20070411
  3. VELCADE [Suspect]
     Dosage: 0.6 MG IV
     Route: 042
     Dates: start: 20070404, end: 20070419
  4. LASIX [Concomitant]
  5. LISINOPRIL [Concomitant]
  6. FISH OIL [Concomitant]
  7. FOLIC ACID [Concomitant]
  8. MV [Concomitant]
  9. POTASSIUM CHLORIDE [Concomitant]
  10. ASCORBIC ACID [Concomitant]
  11. VITAMIN E [Concomitant]

REACTIONS (2)
  - BLOOD UREA INCREASED [None]
  - DISEASE PROGRESSION [None]
